FAERS Safety Report 4455436-X (Version None)
Quarter: 2004Q3

REPORT INFORMATION
  Report Type: 
  Country: None (occurrence: None)
  Receive Date: 20040922
  Receipt Date: 20040914
  Transmission Date: 20050211
  Serious: Yes (Hospitalization, Other)
  Sender: FDA-Public Use
  Company Number: US-JNJFOC-20040704822

PATIENT
  Sex: Female

DRUGS (26)
  1. REMICADE [Suspect]
     Route: 042
  2. REMICADE [Suspect]
     Indication: RHEUMATOID ARTHRITIS
     Route: 042
  3. PROZAC [Concomitant]
  4. FOLIC ACID [Concomitant]
  5. HYDROXYCHLOROQUINE SULFATE [Concomitant]
  6. PREVACID [Concomitant]
  7. ADVIL [Concomitant]
     Dosage: 4 TABLETS UP TO 3 TIMES A DAY
  8. ASPIRIN [Concomitant]
  9. VITAMIN A [Concomitant]
  10. VITAMIN C [Concomitant]
  11. VITAMIN E [Concomitant]
  12. ARAVA [Concomitant]
  13. BIRTH CONTOL PILLS [Concomitant]
  14. ACCUPRIL [Concomitant]
  15. HYDROCHLOROTHIAZIDE [Concomitant]
  16. ENDOCET [Concomitant]
  17. ENDOCET [Concomitant]
     Dosage: PRN
  18. ECOTRIN [Concomitant]
  19. MULTI-VITAMINS [Concomitant]
  20. MULTI-VITAMINS [Concomitant]
  21. MULTI-VITAMINS [Concomitant]
  22. MULTI-VITAMINS [Concomitant]
  23. MULTI-VITAMINS [Concomitant]
  24. MULTI-VITAMINS [Concomitant]
  25. MULTI-VITAMINS [Concomitant]
  26. MULTI-VITAMINS [Concomitant]

REACTIONS (6)
  - ARTHRALGIA [None]
  - BREAST CANCER FEMALE [None]
  - DIARRHOEA [None]
  - JOINT SPRAIN [None]
  - JOINT STIFFNESS [None]
  - PYREXIA [None]
